FAERS Safety Report 8283158-6 (Version None)
Quarter: 2012Q2

REPORT INFORMATION
  Report Type: 
  Country: None (occurrence: None)
  Receive Date: 20120413
  Receipt Date: 20120409
  Transmission Date: 20120825
  Serious: Yes (Other)
  Sender: FDA-Public Use
  Company Number: ES-GLAXOSMITHKLINE-B0795056A

PATIENT
  Age: 46 Year
  Sex: Male

DRUGS (3)
  1. ANTABUSE [Concomitant]
     Route: 048
     Dates: start: 20100513
  2. SEDOTIME [Suspect]
     Route: 048
     Dates: start: 20110201
  3. BUPROPION HCL [Suspect]
     Indication: SMOKING CESSATION THERAPY
     Route: 048
     Dates: start: 20110201

REACTIONS (1)
  - CELL DEATH [None]
